FAERS Safety Report 21641615 (Version 2)
Quarter: 2022Q4

REPORT INFORMATION
  Report Type: Report from Study
  Country: US (occurrence: US)
  Receive Date: 20221125
  Receipt Date: 20221219
  Transmission Date: 20230112
  Serious: Yes (Other)
  Sender: FDA-Public Use
  Company Number: US-ABBVIE-4210071

PATIENT
  Sex: Male

DRUGS (1)
  1. HUMIRA [Suspect]
     Active Substance: ADALIMUMAB
     Indication: Crohn^s disease
     Dosage: CITRATE FREE?STRENGTH 40 MG
     Route: 058

REACTIONS (9)
  - Cataract [Unknown]
  - Headache [Recovered/Resolved]
  - Pain [Unknown]
  - Infectious mononucleosis [Recovering/Resolving]
  - Pharyngitis streptococcal [Recovered/Resolved]
  - Crohn^s disease [Unknown]
  - Infection [Unknown]
  - Vision blurred [Unknown]
  - Visual impairment [Unknown]

NARRATIVE: CASE EVENT DATE: 20220101
